FAERS Safety Report 25181011 (Version 1)
Quarter: 2025Q2

REPORT INFORMATION
  Report Type: Spontaneous
  Country: US (occurrence: US)
  Receive Date: 20250409
  Receipt Date: 20250409
  Transmission Date: 20250716
  Serious: Yes (Hospitalization)
  Sender: MALLINCKRODT
  Company Number: US-MALLINCKRODT-MNK202502066

PATIENT
  Age: 30 Year
  Sex: Female

DRUGS (3)
  1. NITRIC OXIDE [Suspect]
     Active Substance: NITRIC OXIDE
     Indication: Pulmonary hypertension
     Route: 055
  2. EPOPROSTENOL [Concomitant]
     Active Substance: EPOPROSTENOL
  3. EPOPROSTENOL [Concomitant]
     Active Substance: EPOPROSTENOL

REACTIONS (3)
  - Right ventricular failure [Recovering/Resolving]
  - Condition aggravated [Recovering/Resolving]
  - Product use issue [Unknown]
